FAERS Safety Report 25169111 (Version 1)
Quarter: 2025Q2

REPORT INFORMATION
  Report Type: Spontaneous
  Country: US (occurrence: US)
  Receive Date: 20250407
  Receipt Date: 20250407
  Transmission Date: 20250717
  Serious: Yes (Death)
  Sender: PFIZER
  Company Number: US-PFIZER INC-202500071218

PATIENT
  Age: 84 Year
  Sex: Male

DRUGS (1)
  1. VYNDAMAX [Suspect]
     Active Substance: TAFAMIDIS
     Route: 048

REACTIONS (1)
  - Death [Fatal]
